FAERS Safety Report 13196648 (Version 2)
Quarter: 2017Q1

REPORT INFORMATION
  Report Type: Spontaneous
  Country: IT (occurrence: IT)
  Receive Date: 20170208
  Receipt Date: 20170216
  Transmission Date: 20170428
  Serious: Yes (Other)
  Sender: FDA-Public Use
  Company Number: IT-PFIZER INC-2017055887

PATIENT
  Age: 81 Year
  Sex: Male
  Weight: 68 kg

DRUGS (6)
  1. PACLITAXEL. [Suspect]
     Active Substance: PACLITAXEL
     Indication: ADENOCARCINOMA GASTRIC
     Dosage: 90 MG, CYCLIC
     Route: 042
     Dates: start: 20160711, end: 20160816
  2. PLAVIX [Concomitant]
     Active Substance: CLOPIDOGREL BISULFATE
     Dosage: UNK
  3. RAMUCIRUMAB [Concomitant]
     Active Substance: RAMUCIRUMAB
     Dosage: 400 MG, UNK
     Route: 042
     Dates: start: 20160711, end: 20160816
  4. PANTOPRAZOLE [Concomitant]
     Active Substance: PANTOPRAZOLE SODIUM
     Dosage: UNK
  5. XATRAL [Concomitant]
     Active Substance: ALFUZOSIN
     Dosage: UNK
  6. RAMIPRIL. [Concomitant]
     Active Substance: RAMIPRIL
     Dosage: UNK

REACTIONS (1)
  - Proteinuria [Unknown]

NARRATIVE: CASE EVENT DATE: 20160822
